FAERS Safety Report 13130709 (Version 1)
Quarter: 2017Q1

REPORT INFORMATION
  Report Type: Spontaneous
  Country: US (occurrence: US)
  Receive Date: 20170119
  Receipt Date: 20170119
  Transmission Date: 20170428
  Serious: Yes (Hospitalization, Other)
  Sender: FDA-Public Use
  Company Number: US-BAYER-2017-008498

PATIENT
  Age: 63 Year
  Sex: Male

DRUGS (2)
  1. ACETYLSALICYLIC ACID({=100 MG) [Suspect]
     Active Substance: ASPIRIN
     Dosage: ON POST-OPERATIVE DAY 6
  2. HEPARIN [Interacting]
     Active Substance: HEPARIN SODIUM
     Indication: ANTICOAGULANT THERAPY
     Dosage: STARTED ON POST-OPERATIVE DAY 12

REACTIONS (10)
  - Deep vein thrombosis [Recovered/Resolved]
  - Vascular stenosis [Recovered/Resolved]
  - Pelvic venous thrombosis [Recovered/Resolved]
  - Thrombophlebitis superficial [None]
  - Labelled drug-drug interaction medication error [Recovered/Resolved]
  - Blood creatinine decreased [Recovered/Resolved]
  - Ascites [Recovered/Resolved]
  - Oliguria [Recovered/Resolved]
  - Haemorrhage [None]
  - Drug ineffective [None]
